FAERS Safety Report 23609739 (Version 2)
Quarter: 2024Q2

REPORT INFORMATION
  Report Type: Report from Study
  Country: CA (occurrence: CA)
  Receive Date: 20240308
  Receipt Date: 20240410
  Transmission Date: 20240717
  Serious: Yes (Hospitalization, Other)
  Sender: FDA-Public Use
  Company Number: CA-ABBVIE-5666274

PATIENT
  Age: 90 Year
  Sex: Male

DRUGS (1)
  1. RINVOQ [Suspect]
     Active Substance: UPADACITINIB
     Indication: Dermatitis atopic
     Dosage: FORM STRENGTH: 15 MG?LAST ADMIN DATE 2024
     Route: 048
     Dates: start: 20240301

REACTIONS (3)
  - Cerebrovascular accident [Recovered/Resolved]
  - Gait disturbance [Unknown]
  - Dizziness [Unknown]

NARRATIVE: CASE EVENT DATE: 20240301
